FAERS Safety Report 23963350 (Version 1)
Quarter: 2024Q2

REPORT INFORMATION
  Report Type: Spontaneous
  Country: BY (occurrence: BY)
  Receive Date: 20240611
  Receipt Date: 20240611
  Transmission Date: 20240716
  Serious: Yes (Other)
  Sender: FDA-Public Use
  Company Number: BY-ORGANON-O2406BLR000628

PATIENT
  Age: 34 Year
  Sex: Female

DRUGS (2)
  1. NUVARING [Suspect]
     Active Substance: ETHINYL ESTRADIOL\ETONOGESTREL
     Indication: Contraception
     Dosage: 1 RING PER 21 DAYS PERIOD
     Route: 067
     Dates: start: 20240328, end: 20240410
  2. ESCAPEL [Concomitant]
     Indication: Post coital contraception
     Dosage: 1.5 MG TABLET ONE-TIME
     Dates: start: 20240405, end: 20240405

REACTIONS (4)
  - Abortion induced [Unknown]
  - Pregnancy with contraceptive device [Recovered/Resolved]
  - Drug ineffective [Unknown]
  - Unintended pregnancy [Recovered/Resolved]

NARRATIVE: CASE EVENT DATE: 20240101
